FAERS Safety Report 5322555-5 (Version None)
Quarter: 2007Q2

REPORT INFORMATION
  Report Type: 
  Country: None (occurrence: None)
  Receive Date: 20070511
  Receipt Date: 20070504
  Transmission Date: 20071010
  Serious: Yes (Other)
  Sender: FDA-Public Use
  Company Number: PHEH2007US06244

PATIENT
  Age: 46 Year
  Sex: Female
  Weight: 68.027 kg

DRUGS (5)
  1. ZELNORM [Suspect]
     Indication: IRRITABLE BOWEL SYNDROME
     Dosage: 6 MG, BID
     Route: 048
  2. BIOHORMONE [Concomitant]
  3. WELLBUTRIN [Concomitant]
  4. TOPAMAX [Concomitant]
     Indication: HEADACHE
     Dosage: 100 UNK, BID
     Route: 048
     Dates: start: 20051001
  5. ESGIC [Concomitant]
     Indication: HEADACHE
     Dosage: UNK, PRN
     Route: 048
     Dates: start: 20050701

REACTIONS (1)
  - CEREBROVASCULAR ACCIDENT [None]
